FAERS Safety Report 23574550 (Version 2)
Quarter: 2024Q1

REPORT INFORMATION
  Report Type: Spontaneous
  Country: FR (occurrence: FR)
  Receive Date: 20240228
  Receipt Date: 20240313
  Transmission Date: 20240409
  Serious: Yes (Other)
  Sender: FDA-Public Use
  Company Number: None

PATIENT
  Age: 51 Year
  Sex: Male
  Weight: 80 kg

DRUGS (7)
  1. PANTOPRAZOLE [Suspect]
     Active Substance: PANTOPRAZOLE
     Indication: Gastrointestinal disorder prophylaxis
     Route: 048
     Dates: start: 20231222, end: 20231225
  2. AMIODARONE [Suspect]
     Active Substance: AMIODARONE
     Indication: Left ventricular failure
     Route: 048
     Dates: start: 20231226, end: 20231228
  3. VISIPAQUE [Suspect]
     Active Substance: IODIXANOL
     Indication: Angiocardiogram
     Dosage: TIME INTERVAL: TOTAL: 320 MG I/ML
     Route: 042
     Dates: start: 20231225, end: 20231225
  4. VISIPAQUE [Suspect]
     Active Substance: IODIXANOL
     Indication: Angiocardiogram
     Dosage: TIME INTERVAL: TOTAL: 320 MG I/ML
     Route: 042
     Dates: start: 20231222, end: 20231222
  5. LANSOPRAZOLE [Suspect]
     Active Substance: LANSOPRAZOLE
     Indication: Gastrointestinal disorder prophylaxis
     Route: 048
     Dates: start: 20231226, end: 20231229
  6. LOVENOX [Suspect]
     Active Substance: ENOXAPARIN SODIUM
     Indication: Anticoagulant therapy
     Dosage: ANTI-XA/0.4 ML,
     Route: 058
     Dates: start: 20231225, end: 20231229
  7. POTASSIUM CHLORIDE [Suspect]
     Active Substance: POTASSIUM CHLORIDE
     Indication: Arrhythmic storm
     Route: 048
     Dates: start: 20231222, end: 20231228

REACTIONS (1)
  - Rash maculo-papular [Recovered/Resolved]

NARRATIVE: CASE EVENT DATE: 20231229
